FAERS Safety Report 4582518-4 (Version None)
Quarter: 2005Q1

REPORT INFORMATION
  Report Type: 
  Country: None (occurrence: None)
  Receive Date: 20050211
  Receipt Date: 20050211
  Transmission Date: 20050727
  Serious: Yes (Death)
  Sender: FDA-Public Use
  Company Number: None

PATIENT
  Age: 82 Year
  Sex: Female
  Weight: 80.2867 kg

DRUGS (6)
  1. CARBOPLATIN [Suspect]
     Indication: BREAST CANCER METASTATIC
     Dosage: 300 MG IVPB
     Route: 042
     Dates: start: 20030607, end: 20031201
  2. CARBOPLATIN [Suspect]
     Indication: BREAST CANCER METASTATIC
     Dosage: 300 MG IVPB
     Route: 042
     Dates: start: 20041130, end: 20041221
  3. DECADRON [Concomitant]
  4. KYTRIL [Concomitant]
  5. BENADRYL [Concomitant]
  6. TAXOL [Concomitant]

REACTIONS (5)
  - CARDIO-RESPIRATORY ARREST [None]
  - COMA [None]
  - DYSPNOEA [None]
  - FLUSHING [None]
  - SYNCOPE [None]
